FAERS Safety Report 6470191-X (Version None)
Quarter: 2009Q4

REPORT INFORMATION
  Report Type: 
  Country: None (occurrence: None)
  Receive Date: 20091203
  Receipt Date: 20071127
  Transmission Date: 20100525
  Serious: Yes (Other)
  Sender: FDA-Public Use
  Company Number: TR-ELI_LILLY_AND_COMPANY-TR200712000968

PATIENT
  Sex: Male
  Weight: 80 kg

DRUGS (5)
  1. HUMALOG MIX 50/50 [Suspect]
     Indication: TYPE 2 DIABETES MELLITUS
     Dosage: 35 U, EACH MORNING
     Route: 058
     Dates: start: 20070801
  2. HUMALOG MIX 50/50 [Suspect]
     Dosage: 30 U, EACH EVENING
     Route: 058
     Dates: start: 20070801
  3. DIAZEM [Concomitant]
     Dosage: 1 D/F, DAILY (1/D)
  4. DISPRIL [Concomitant]
     Dosage: 300 MG, UNK
  5. CLOPIDOGREL SULFATE [Concomitant]
     Dosage: UNK, DAILY (1/D)

REACTIONS (3)
  - BLOOD GLUCOSE FLUCTUATION [None]
  - BLOOD GLUCOSE INCREASED [None]
  - CARDIAC OPERATION [None]
